FAERS Safety Report 5678719-4 (Version None)
Quarter: 2008Q1

REPORT INFORMATION
  Report Type: 
  Country: None (occurrence: None)
  Receive Date: 20080324
  Receipt Date: 20080324
  Transmission Date: 20080703
  Serious: Yes (Hospitalization)
  Sender: FDA-Public Use
  Company Number: None

PATIENT
  Age: 63 Year
  Sex: Female
  Weight: 38.5557 kg

DRUGS (5)
  1. MIRTAZAPINE [Suspect]
     Indication: ANOREXIA
     Dosage: 15 MG 1 DAILY PO
     Route: 048
     Dates: start: 20080217, end: 20080314
  2. MIRTAZAPINE [Suspect]
     Indication: FATIGUE
     Dosage: 15 MG 1 DAILY PO
     Route: 048
     Dates: start: 20080217, end: 20080314
  3. LITHIUM [Concomitant]
  4. CLONAZEPAM [Concomitant]
  5. LEVOTHYROXINE SODIUM [Concomitant]

REACTIONS (1)
  - PERFORMANCE STATUS DECREASED [None]
